FAERS Safety Report 5801241-9 (Version None)
Quarter: 2008Q3

REPORT INFORMATION
  Report Type: 
  Country: None (occurrence: None)
  Receive Date: 20080707
  Receipt Date: 20080625
  Transmission Date: 20090109
  Serious: Yes (Other)
  Sender: FDA-Public Use
  Company Number: US-JNJFOC-20080606701

PATIENT
  Sex: Female
  Weight: 61.24 kg

DRUGS (3)
  1. DURAGESIC-100 [Suspect]
     Indication: PAIN
     Route: 062
  2. LORTAB [Concomitant]
     Indication: PAIN
     Route: 048
  3. ASPIRIN [Concomitant]
     Indication: MITRAL VALVE DISEASE
     Route: 048

REACTIONS (5)
  - DRUG DOSE OMISSION [None]
  - FATIGUE [None]
  - HYPERCHOLESTEROLAEMIA [None]
  - PAIN [None]
  - THYROID DISORDER [None]
